FAERS Safety Report 11417662 (Version 2)
Quarter: 2015Q3

REPORT INFORMATION
  Report Type: Spontaneous
  Country: MX (occurrence: MX)
  Receive Date: 20150825
  Receipt Date: 20150908
  Transmission Date: 20151125
  Serious: No
  Sender: FDA-Public Use
  Company Number: PHHY2015MX102725

PATIENT
  Age: 54 Year
  Sex: Female

DRUGS (3)
  1. FRISIUM [Concomitant]
     Active Substance: CLOBAZAM
     Indication: SEIZURE
     Dosage: 1 DF (ONE TABLET), PRN (WHEN SHE HAD SEIZURES)
     Route: 065
  2. TOPAMAX [Concomitant]
     Active Substance: TOPIRAMATE
     Indication: NEUROCYSTICERCOSIS
     Dosage: 1 DF (ONE TABLET), QHS
     Route: 065
  3. TEGRETOL [Suspect]
     Active Substance: CARBAMAZEPINE
     Indication: NEUROCYSTICERCOSIS
     Dosage: 1 DF (ONE TABLET), Q12H
     Route: 048

REACTIONS (3)
  - Rash [Not Recovered/Not Resolved]
  - Hypertension [Unknown]
  - Off label use [Unknown]
